FAERS Safety Report 13939804 (Version 1)
Quarter: 2017Q3

REPORT INFORMATION
  Report Type: Spontaneous
  Country: DE (occurrence: DE)
  Receive Date: 20170906
  Receipt Date: 20170906
  Transmission Date: 20171127
  Serious: Yes (Other)
  Sender: FDA-Public Use
  Company Number: DE-BRISTOL-MYERS SQUIBB COMPANY-BMS-2017-050885

PATIENT
  Sex: Female

DRUGS (3)
  1. ELIQUIS [Suspect]
     Active Substance: APIXABAN
     Indication: CEREBROVASCULAR ACCIDENT PROPHYLAXIS
     Dosage: 2.5 MG, BID
     Route: 048
  2. BISOPROLOL [Concomitant]
     Active Substance: BISOPROLOL
     Indication: PRODUCT USED FOR UNKNOWN INDICATION
     Route: 065
  3. ANAGRELIDA [Concomitant]
     Indication: PRODUCT USED FOR UNKNOWN INDICATION
     Route: 065

REACTIONS (11)
  - Thrombocytosis [Unknown]
  - Gastrointestinal disorder [Unknown]
  - Teeth brittle [Unknown]
  - Dental prosthesis placement [Unknown]
  - Cardiac flutter [Unknown]
  - Fatigue [Not Recovered/Not Resolved]
  - Impaired healing [Unknown]
  - Prescribed overdose [Unknown]
  - Thrombosis [Unknown]
  - Mineral deficiency [Unknown]
  - Gastrointestinal mucosal disorder [Not Recovered/Not Resolved]
